FAERS Safety Report 23676328 (Version 1)
Quarter: 2024Q1

REPORT INFORMATION
  Report Type: Spontaneous
  Country: ES (occurrence: ES)
  Receive Date: 20240327
  Receipt Date: 20240327
  Transmission Date: 20240410
  Serious: Yes (Other)
  Sender: FDA-Public Use
  Company Number: ES-ALKEM LABORATORIES LIMITED-ES-ALKEM-2023-16770

PATIENT
  Age: 47 Year
  Sex: Male

DRUGS (2)
  1. FEBUXOSTAT [Suspect]
     Active Substance: FEBUXOSTAT
     Indication: Hyperuricaemia
     Dosage: UNK
     Route: 065
  2. FEBUXOSTAT [Suspect]
     Active Substance: FEBUXOSTAT
     Dosage: 120 MILLIGRAM, INCREASED DOSE
     Route: 065

REACTIONS (2)
  - Hepatitis [Recovered/Resolved]
  - Hypertransaminasaemia [Recovered/Resolved]
